FAERS Safety Report 5492972-1 (Version None)
Quarter: 2007Q4

REPORT INFORMATION
  Report Type: 
  Country: None (occurrence: None)
  Receive Date: 20071023
  Receipt Date: 20071018
  Transmission Date: 20080405
  Serious: Yes (Hospitalization)
  Sender: FDA-Public Use
  Company Number: US-BRISTOL-MYERS SQUIBB COMPANY-13947411

PATIENT
  Age: 53 Year
  Sex: Female
  Weight: 94 kg

DRUGS (3)
  1. CISPLATIN [Suspect]
     Indication: SMALL CELL LUNG CANCER STAGE UNSPECIFIED
     Dosage: 80MG/M2,OVER 1HR ON DAY1,RECIEVED 160 MG ON 05SEP07
     Route: 042
     Dates: start: 20070905
  2. ETOPOSIDE [Suspect]
     Indication: SMALL CELL LUNG CANCER STAGE UNSPECIFIED
     Dosage: 100MG/M2, OVER 1HR ON DAYS 1-3,600 MG FROM 05 SEP07 TO 07 SEP07
     Route: 042
     Dates: start: 20070905
  3. SU-011,248 [Suspect]
     Indication: SMALL CELL LUNG CANCER STAGE UNSPECIFIED
     Dosage: 25MG ON DAYS 1-14 AND 37.5MG(150 MG, ON DAY 1; INTERVAL QD);325 MG FROM 05-SEP-2007 TO 07-SEP-2007.
     Route: 048
     Dates: start: 20070905

REACTIONS (11)
  - ALANINE AMINOTRANSFERASE INCREASED [None]
  - ASPARTATE AMINOTRANSFERASE INCREASED [None]
  - BLOOD ALKALINE PHOSPHATASE INCREASED [None]
  - BLOOD CREATININE INCREASED [None]
  - DEHYDRATION [None]
  - HYPERBILIRUBINAEMIA [None]
  - NAUSEA [None]
  - NEUTROPHIL COUNT DECREASED [None]
  - PLATELET COUNT DECREASED [None]
  - VOMITING [None]
  - WHITE BLOOD CELL COUNT DECREASED [None]
